FAERS Safety Report 7893055-3 (Version None)
Quarter: 2011Q4

REPORT INFORMATION
  Report Type: 
  Country: None (occurrence: None)
  Receive Date: 20111104
  Receipt Date: 20110919
  Transmission Date: 20120403
  Serious: No
  Sender: FDA-Public Use
  Company Number: US-GLAXOSMITHKLINE-A0945171A

PATIENT
  Age: 70 Year
  Sex: Female

DRUGS (6)
  1. LASIX [Concomitant]
  2. UNKNOWN DRUG [Concomitant]
  3. ATENOLOL [Concomitant]
  4. POTASSIUM [Concomitant]
  5. HORIZANT [Suspect]
     Indication: RESTLESS LEGS SYNDROME
     Dosage: 600MG PER DAY
     Route: 048
     Dates: start: 20110916
  6. HYDROCODONE BITARTRATE [Concomitant]

REACTIONS (2)
  - DRUG INEFFECTIVE [None]
  - CONDITION AGGRAVATED [None]
